FAERS Safety Report 25236698 (Version 2)
Quarter: 2025Q3

REPORT INFORMATION
  Report Type: Report from Study
  Country: US (occurrence: US)
  Receive Date: 20250424
  Receipt Date: 20250702
  Transmission Date: 20251021
  Serious: Yes (Other)
  Sender: NOVARTIS
  Company Number: US-002147023-NVSC2025US059999

PATIENT
  Sex: Male

DRUGS (1)
  1. KESIMPTA [Suspect]
     Active Substance: OFATUMUMAB
     Indication: Product used for unknown indication
     Dosage: UNK,QMO
     Route: 058

REACTIONS (6)
  - Thrombosis [Unknown]
  - Multiple sclerosis [Unknown]
  - Dysgraphia [Unknown]
  - Fall [Unknown]
  - Lower limb fracture [Unknown]
  - Product storage error [Unknown]
